FAERS Safety Report 15225949 (Version 2)
Quarter: 2018Q4

REPORT INFORMATION
  Report Type: Spontaneous
  Country: US (occurrence: US)
  Receive Date: 20180801
  Receipt Date: 20180820
  Transmission Date: 20190204
  Serious: Yes (Other)
  Sender: FDA-Public Use
  Company Number: US-LUPIN PHARMACEUTICALS INC.-2018-05358

PATIENT
  Age: 21 Month
  Sex: Female

DRUGS (1)
  1. TESTOSTERONE. [Suspect]
     Active Substance: TESTOSTERONE
     Indication: PRODUCT USED FOR UNKNOWN INDICATION
     Dosage: UNK
     Route: 065

REACTIONS (7)
  - Intentional product misuse [Unknown]
  - Increased appetite [Unknown]
  - Abnormal weight gain [Unknown]
  - Gender dysphoria [Unknown]
  - Enlarged clitoris [Unknown]
  - Dysphonia [Unknown]
  - Prescription form tampering [Unknown]
